FAERS Safety Report 6678485-X (Version None)
Quarter: 2010Q2

REPORT INFORMATION
  Report Type: 
  Country: None (occurrence: None)
  Receive Date: 20100413
  Receipt Date: 20100405
  Transmission Date: 20101027
  Serious: No
  Sender: FDA-Public Use
  Company Number: US-BIOGENIDEC-2010BI011619

PATIENT
  Age: 40 Year
  Sex: Female

DRUGS (2)
  1. TYSABRI [Suspect]
     Indication: MULTIPLE SCLEROSIS
     Route: 042
  2. STEROIDS (NOS) [Concomitant]

REACTIONS (5)
  - ASTHENIA [None]
  - DRY MOUTH [None]
  - HEADACHE [None]
  - PALPITATIONS [None]
  - PYREXIA [None]
